FAERS Safety Report 22332989 (Version 10)
Quarter: 2024Q4

REPORT INFORMATION
  Report Type: Report from Study
  Country: CA (occurrence: CA)
  Receive Date: 20230517
  Receipt Date: 20241016
  Transmission Date: 20250114
  Serious: Yes (Hospitalization, Other)
  Sender: HLS THERAPEUTICS
  Company Number: CA-HLS-202000141

PATIENT
  Age: 63 Year
  Sex: Female

DRUGS (3)
  1. EPIVAL [Concomitant]
     Active Substance: DIVALPROEX SODIUM
     Dosage: UNKNOWN
     Route: 065
  2. CLOZARIL [Suspect]
     Active Substance: CLOZAPINE
     Indication: Product used for unknown indication
     Dosage: 400MG BID
     Route: 065
  3. CLOZARIL [Suspect]
     Active Substance: CLOZAPINE
     Indication: Product used for unknown indication
     Dosage: STARTED ON 25 APRIL 1995
     Route: 048

REACTIONS (38)
  - Mental disorder [Recovered/Resolved]
  - Mental disorder [Recovered/Resolved]
  - Blood pressure increased [Recovered/Resolved]
  - Vision blurred [Not Recovered/Not Resolved]
  - Body temperature decreased [Recovered/Resolved]
  - Blood pressure increased [Unknown]
  - Cataract [Unknown]
  - Confusional state [Not Recovered/Not Resolved]
  - Constipation [Recovered/Resolved]
  - Constipation [Recovered/Resolved]
  - Oedema peripheral [Recovered/Resolved]
  - Enuresis [Recovered/Resolved]
  - Headache [Recovered/Resolved]
  - Headache [Recovered/Resolved]
  - Haematocrit decreased [Not Recovered/Not Resolved]
  - Haemoglobin decreased [Not Recovered/Not Resolved]
  - Salivary hypersecretion [Not Recovered/Not Resolved]
  - Dizziness [Recovered/Resolved]
  - Muscle rigidity [Recovered/Resolved]
  - Muscle rigidity [Recovered/Resolved]
  - Muscular weakness [Recovered/Resolved]
  - Muscular weakness [Recovered/Resolved]
  - Muscular weakness [Not Recovered/Not Resolved]
  - Muscle rigidity [Unknown]
  - Nausea [Recovered/Resolved]
  - Nausea [Recovered/Resolved]
  - Nausea [Recovered/Resolved]
  - Oedema [Recovered/Resolved]
  - Pain [Recovered/Resolved]
  - Paranoia [Unknown]
  - Polyuria [Recovered/Resolved]
  - Psychotic disorder [Unknown]
  - Red blood cell count decreased [Unknown]
  - Sedation [Recovered/Resolved]
  - Tremor [Recovered/Resolved]
  - Vertigo [Recovered/Resolved]
  - Syncope [Recovered/Resolved]
  - Muscular weakness [Recovered/Resolved]

NARRATIVE: CASE EVENT DATE: 20190217
